FAERS Safety Report 7034727-2 (Version None)
Quarter: 2010Q4

REPORT INFORMATION
  Report Type: 
  Country: None (occurrence: None)
  Receive Date: 20101008
  Receipt Date: 20100927
  Transmission Date: 20110411
  Serious: Yes (Other)
  Sender: FDA-Public Use
  Company Number: PHEH2010US03537

PATIENT
  Sex: Male

DRUGS (6)
  1. AFINITOR [Suspect]
     Indication: RENAL CANCER
     Dosage: 5 MG, QD
     Route: 048
  2. AFINITOR [Suspect]
     Indication: URINARY TRACT NEOPLASM
  3. AMIODARONE [Concomitant]
     Indication: CARDIAC DISORDER
     Dosage: 200 MG, QD
  4. EPOGEN [Concomitant]
     Indication: DIALYSIS
     Dosage: UNK
  5. COUMADIN [Concomitant]
     Indication: ATRIAL FIBRILLATION
     Dosage: 5 MG, QD
  6. COREG [Concomitant]
     Indication: HYPERTENSION
     Dosage: 12.5 MG, BID

REACTIONS (2)
  - ATRIAL FIBRILLATION [None]
  - FATIGUE [None]
